FAERS Safety Report 10669071 (Version 2)
Quarter: 2015Q2

REPORT INFORMATION
  Report Type: Spontaneous
  Country: US (occurrence: US)
  Receive Date: 20141222
  Receipt Date: 20150506
  Transmission Date: 20150821
  Serious: No
  Sender: FDA-Public Use
  Company Number: US-GLAXOSMITHKLINE-US2014GSK039892

PATIENT
  Sex: Male

DRUGS (1)
  1. VOTRIENT [Suspect]
     Active Substance: PAZOPANIB HYDROCHLORIDE
     Indication: THYROID CANCER
     Dosage: 800 MG, UNK
     Route: 065
     Dates: start: 20140924

REACTIONS (5)
  - Drug ineffective [Unknown]
  - Nervousness [Unknown]
  - Skin ulcer [Unknown]
  - Fatigue [Unknown]
  - Rhinorrhoea [Unknown]
